FAERS Safety Report 8596898 (Version 3)
Quarter: 2013Q3

REPORT INFORMATION
  Report Type: Report from Study
  Country: DE (occurrence: DE)
  Receive Date: 20120605
  Receipt Date: 20130926
  Transmission Date: 20140515
  Serious: Yes (Hospitalization)
  Sender: FDA-Public Use
  Company Number: PHHY2012DE047035

PATIENT
  Age: 50 Year
  Sex: Female
  Weight: 50.98 kg

DRUGS (3)
  1. FTY 720 [Suspect]
     Indication: MULTIPLE SCLEROSIS
     Dosage: 0.5 MG, QD
     Route: 048
     Dates: start: 20120316, end: 20120511
  2. FTY 720 [Suspect]
     Dosage: 0.5 MG, QD
     Route: 048
     Dates: start: 20120723
  3. LEVETIRACETAM [Concomitant]
     Dosage: 500 MG, UNK
     Dates: start: 20120711

REACTIONS (3)
  - Epilepsy [Recovered/Resolved]
  - Visual impairment [Recovered/Resolved]
  - Dyspnoea [Recovered/Resolved]
